FAERS Safety Report 14695415 (Version 1)
Quarter: 2018Q1

REPORT INFORMATION
  Report Type: Spontaneous
  Country: US (occurrence: US)
  Receive Date: 20180329
  Receipt Date: 20180329
  Transmission Date: 20180509
  Serious: Yes (Other)
  Sender: FDA-Public Use
  Company Number: US-TEVA-2018-US-874854

PATIENT
  Age: 15 Year
  Sex: Female

DRUGS (7)
  1. BORTEZOMIB [Concomitant]
     Active Substance: BORTEZOMIB
     Indication: DIFFUSE LARGE B-CELL LYMPHOMA
     Route: 065
  2. VINCRISTINE [Concomitant]
     Active Substance: VINCRISTINE
     Indication: DIFFUSE LARGE B-CELL LYMPHOMA
     Route: 065
  3. SIROLIMUS. [Concomitant]
     Active Substance: SIROLIMUS
     Indication: DIFFUSE LARGE B-CELL LYMPHOMA
     Route: 065
  4. ETOPOSIDE. [Suspect]
     Active Substance: ETOPOSIDE
     Indication: DIFFUSE LARGE B-CELL LYMPHOMA
     Route: 065
  5. DOXORUBICIN [Concomitant]
     Active Substance: DOXORUBICIN
     Indication: DIFFUSE LARGE B-CELL LYMPHOMA
     Route: 065
  6. PREDNISONE. [Concomitant]
     Active Substance: PREDNISONE
     Indication: DIFFUSE LARGE B-CELL LYMPHOMA
     Route: 065
  7. THALIDOMIDE [Concomitant]
     Active Substance: THALIDOMIDE
     Indication: DIFFUSE LARGE B-CELL LYMPHOMA
     Route: 065

REACTIONS (1)
  - Acute myeloid leukaemia [Recovering/Resolving]
